FAERS Safety Report 9403065 (Version 3)
Quarter: 2013Q4

REPORT INFORMATION
  Report Type: Spontaneous
  Country: US (occurrence: US)
  Receive Date: 20130716
  Receipt Date: 20131220
  Transmission Date: 20140711
  Serious: Yes (Death)
  Sender: FDA-Public Use
  Company Number: US-GLAXOSMITHKLINE-A1033311A

PATIENT
  Age: 86 Year
  Sex: Female

DRUGS (1)
  1. AVANDIA [Suspect]
     Indication: DIABETES MELLITUS
     Route: 048
     Dates: start: 20031217, end: 2007

REACTIONS (4)
  - Myocardial infarction [Fatal]
  - Myocardial infarction [Unknown]
  - Coronary artery disease [Unknown]
  - Atrial fibrillation [Unknown]
